FAERS Safety Report 5919837-2 (Version None)
Quarter: 2008Q4

REPORT INFORMATION
  Report Type: 
  Country: None (occurrence: None)
  Receive Date: 20081015
  Receipt Date: 20081003
  Transmission Date: 20090506
  Serious: Yes (Hospitalization, Other)
  Sender: FDA-Public Use
  Company Number: GB-PFIZER INC-2008076681

PATIENT
  Sex: Male
  Weight: 60 kg

DRUGS (7)
  1. CHAMPIX [Suspect]
     Indication: SMOKING CESSATION THERAPY
     Route: 048
     Dates: start: 20080815
  2. ALCOHOL [Suspect]
  3. CLOPIDOGREL [Concomitant]
     Dosage: DAILY DOSE:75MG-TEXT:DAILY
     Route: 048
     Dates: start: 20080626
  4. INDAPAMIDE [Concomitant]
     Dosage: DAILY DOSE:2.5MG-TEXT:DAILY
     Route: 048
     Dates: start: 20080626
  5. LANSOPRAZOLE [Concomitant]
     Dosage: DAILY DOSE:30MG-TEXT:DAILY
     Route: 048
     Dates: start: 20070728
  6. SIMVASTATIN [Concomitant]
     Dosage: DAILY DOSE:40MG-TEXT:AT NIGHT
     Route: 048
     Dates: start: 20080626
  7. THIAMINE HCL [Concomitant]
     Route: 048
     Dates: start: 20061230

REACTIONS (4)
  - ABDOMINAL PAIN UPPER [None]
  - CONSTIPATION [None]
  - DIZZINESS [None]
  - PANCREATITIS RELAPSING [None]
